FAERS Safety Report 4530415-2 (Version None)
Quarter: 2004Q4

REPORT INFORMATION
  Report Type: 
  Country: None (occurrence: None)
  Receive Date: 20041215
  Receipt Date: 20041206
  Transmission Date: 20050328
  Serious: No
  Sender: FDA-Public Use
  Company Number: 2004GB03011

PATIENT
  Sex: Female

DRUGS (2)
  1. QUETIAPINE [Suspect]
  2. EXELON [Suspect]

REACTIONS (1)
  - TRANSIENT ISCHAEMIC ATTACK [None]
